FAERS Safety Report 19188835 (Version 4)
Quarter: 2021Q3

REPORT INFORMATION
  Report Type: Report from Study
  Country: None (occurrence: US)
  Receive Date: 20210428
  Receipt Date: 20210729
  Transmission Date: 20211014
  Serious: Yes (Hospitalization, Other)
  Sender: FDA-Public Use
  Company Number: US-ABBVIE-21K-163-3875957-00

PATIENT
  Age: 49 Year
  Sex: Male
  Weight: 100 kg

DRUGS (8)
  1. BUDESONIDE. [Concomitant]
     Active Substance: BUDESONIDE
     Indication: CROHN^S DISEASE
  2. BENTYL [Concomitant]
     Active Substance: DICYCLOMINE HYDROCHLORIDE
     Indication: CROHN^S DISEASE
  3. LYRICA [Concomitant]
     Active Substance: PREGABALIN
     Indication: NEUROPATHY PERIPHERAL
  4. HUMIRA [Suspect]
     Active Substance: ADALIMUMAB
     Dosage: CITRATE FREE
     Route: 058
     Dates: start: 202001
  5. MODERNA COVID?19 VACCINE [Suspect]
     Active Substance: CX-024414
     Indication: COVID-19 IMMUNISATION
     Dosage: MODERNA
     Route: 030
     Dates: start: 202104, end: 202104
  6. APRISO [Concomitant]
     Active Substance: MESALAMINE
     Indication: CROHN^S DISEASE
  7. MODERNA COVID?19 VACCINE [Suspect]
     Active Substance: CX-024414
     Dosage: MODERNA
     Route: 030
     Dates: start: 202105, end: 202105
  8. HUMIRA [Suspect]
     Active Substance: ADALIMUMAB
     Indication: CROHN^S DISEASE
     Dosage: CITRATE FREE
     Route: 058
     Dates: start: 2010, end: 2017

REACTIONS (20)
  - End stage renal disease [Not Recovered/Not Resolved]
  - Illness [Recovered/Resolved]
  - Bacterial infection [Recovered/Resolved]
  - Dialysis related complication [Not Recovered/Not Resolved]
  - Post procedural complication [Unknown]
  - Feeling abnormal [Recovering/Resolving]
  - Immunodeficiency [Recovered/Resolved]
  - Chills [Not Recovered/Not Resolved]
  - Fatigue [Not Recovered/Not Resolved]
  - Drug specific antibody present [Unknown]
  - Pyrexia [Recovered/Resolved]
  - Feeling cold [Not Recovered/Not Resolved]
  - Somnolence [Not Recovered/Not Resolved]
  - Fistula [Recovering/Resolving]
  - Crohn^s disease [Unknown]
  - Ureteral stent removal [Unknown]
  - Fatigue [Recovered/Resolved]
  - Cataract [Recovered/Resolved]
  - Fatigue [Recovered/Resolved]
  - Feeling hot [Recovering/Resolving]

NARRATIVE: CASE EVENT DATE: 2017
